FAERS Safety Report 24085827 (Version 1)
Quarter: 2024Q3

REPORT INFORMATION
  Report Type: Spontaneous
  Country: FR (occurrence: FR)
  Receive Date: 20240712
  Receipt Date: 20240712
  Transmission Date: 20241016
  Serious: Yes (Disabling)
  Sender: SANDOZ
  Company Number: None

PATIENT
  Age: 15 Year
  Sex: Male
  Weight: 38.1 kg

DRUGS (22)
  1. AMIKACIN [Suspect]
     Active Substance: AMIKACIN
     Indication: Sepsis
     Dosage: 770.000MG QD
     Route: 042
     Dates: start: 20240217, end: 20240218
  2. CYCLOPHOSPHAMIDE [Suspect]
     Active Substance: CYCLOPHOSPHAMIDE
     Indication: B-cell lymphoma
     Dosage: 400.000MG
     Route: 042
     Dates: start: 20231125, end: 20231125
  3. CYCLOPHOSPHAMIDE [Suspect]
     Active Substance: CYCLOPHOSPHAMIDE
     Dosage: 660.000MG QD
     Route: 042
     Dates: start: 20231204, end: 20231207
  4. CYTARABINE [Suspect]
     Active Substance: CYTARABINE
     Indication: B-cell lymphoma
     Dosage: 132.000MG QD
     Route: 042
     Dates: start: 20240113, end: 20240114
  5. CYTARABINE [Suspect]
     Active Substance: CYTARABINE
     Dosage: 3900.000MG QD
     Route: 042
     Dates: start: 20240114, end: 20240115
  6. CYTARABINE [Suspect]
     Active Substance: CYTARABINE
     Dosage: 3900.000MG QD
     Route: 042
     Dates: start: 20240205, end: 20240206
  7. DOXORUBICIN [Suspect]
     Active Substance: DOXORUBICIN
     Indication: B-cell lymphoma
     Dosage: 78.000MG
     Route: 042
     Dates: start: 20231224, end: 20231224
  8. DOXORUBICIN [Suspect]
     Active Substance: DOXORUBICIN
     Dosage: 80.000MG
     Route: 042
     Dates: start: 20231204, end: 20231204
  9. ETOPOSIDE [Suspect]
     Active Substance: ETOPOSIDE
     Indication: B-cell lymphoma
     Dosage: 260.000MG QD
     Route: 042
     Dates: start: 20240115, end: 20240117
  10. ETOPOSIDE [Suspect]
     Active Substance: ETOPOSIDE
     Dosage: 260.000MG QD
     Route: 042
     Dates: start: 20240203, end: 20240205
  11. MEROPENEM ANHYDROUS [Suspect]
     Active Substance: MEROPENEM ANHYDROUS
     Indication: Sepsis
     Dosage: 770.000MG QD
     Route: 042
     Dates: start: 20240217, end: 20240226
  12. METHOTREXATE [Suspect]
     Active Substance: METHOTREXATE
     Dosage: 15.000MG
     Route: 037
     Dates: start: 20231204, end: 20231204
  13. METHOTREXATE [Suspect]
     Active Substance: METHOTREXATE
     Dosage: 15.000MG
     Route: 037
     Dates: start: 20231224, end: 20231224
  14. METHOTREXATE [Suspect]
     Active Substance: METHOTREXATE
     Indication: B-cell lymphoma
     Dosage: 3950.000MG
     Route: 042
     Dates: start: 20231203, end: 20231203
  15. METHOTREXATE [Suspect]
     Active Substance: METHOTREXATE
     Dosage: 3950.000MG
     Route: 042
     Dates: start: 20231223, end: 20231223
  16. RITUXIMAB [Suspect]
     Active Substance: RITUXIMAB
     Indication: B-cell lymphoma
     Dosage: 490.000MG QD
     Route: 042
     Dates: start: 20231220, end: 20231220
  17. RITUXIMAB [Suspect]
     Active Substance: RITUXIMAB
     Dosage: 490.000MG QD
     Route: 042
     Dates: start: 20240112, end: 20240112
  18. VANCOMYCIN [Suspect]
     Active Substance: VANCOMYCIN
     Indication: Sepsis
     Dosage: 1140.000MG QD
     Route: 042
     Dates: start: 20240218
  19. VINCRISTINE [Suspect]
     Active Substance: VINCRISTINE
     Indication: B-cell lymphoma
     Dosage: 1.300MG
     Route: 042
     Dates: start: 20231125, end: 20231125
  20. VINCRISTINE [Suspect]
     Active Substance: VINCRISTINE
     Dosage: 2.000MG
     Route: 042
     Dates: start: 20231203, end: 20231203
  21. VINCRISTINE [Suspect]
     Active Substance: VINCRISTINE
     Dosage: 2.000MG
     Route: 042
     Dates: start: 20231223, end: 20231223
  22. HYDROCORTISONE [Concomitant]
     Active Substance: HYDROCORTISONE\HYDROCORTISONE ACETATE
     Indication: Sepsis
     Dosage: 15.000MG
     Route: 037
     Dates: start: 20231204, end: 20231224

REACTIONS (1)
  - Quadriparesis [Not Recovered/Not Resolved]

NARRATIVE: CASE EVENT DATE: 20240219
